FAERS Safety Report 10486150 (Version 2)
Quarter: 2014Q4

REPORT INFORMATION
  Report Type: Spontaneous
  Country: US (occurrence: None)
  Receive Date: 20140929
  Receipt Date: 20141024
  Transmission Date: 20150528
  Serious: Yes (Other)
  Sender: FDA-Public Use
  Company Number: 2013-US-003778

PATIENT
  Age: 52 Year
  Sex: Female

DRUGS (1)
  1. XYREM [Suspect]
     Active Substance: SODIUM OXYBATE
     Indication: NARCOLEPSY
     Route: 048
     Dates: start: 201309, end: 2013

REACTIONS (3)
  - Migraine [None]
  - Nasal congestion [None]
  - Sleep apnoea syndrome [None]

NARRATIVE: CASE EVENT DATE: 2013
